FAERS Safety Report 19507945 (Version 2)
Quarter: 2021Q4

REPORT INFORMATION
  Report Type: Report from Study
  Country: DE (occurrence: DE)
  Receive Date: 20210708
  Receipt Date: 20211105
  Transmission Date: 20220303
  Serious: Yes (Other)
  Sender: FDA-Public Use
  Company Number: DE-002147023-NVSC2019DE035091

PATIENT
  Age: 68 Year
  Sex: Female
  Weight: 66 kg

DRUGS (4)
  1. LETROZOLE [Suspect]
     Active Substance: LETROZOLE
     Indication: Breast cancer metastatic
     Dosage: 2.5 MG, QD
     Route: 048
     Dates: start: 20190619, end: 20200321
  2. KISQALI [Suspect]
     Active Substance: RIBOCICLIB
     Indication: Breast cancer metastatic
     Dosage: 600 MG, QD (SCHEMA 21 DAYS INTAKE, THAN 7 DAYS PAUSE)
     Route: 048
     Dates: start: 20190619, end: 20190813
  3. KISQALI [Suspect]
     Active Substance: RIBOCICLIB
     Dosage: 600 MG, QD (SCHEMA 21 DAYS INTAKE, THAN 7 DAYS PAUSE)
     Route: 048
     Dates: start: 20190828, end: 20191107
  4. KISQALI [Suspect]
     Active Substance: RIBOCICLIB
     Dosage: 400 MG, QD (SCHEMA 21 DAYS INTAKE, THAN 7 DAYS PAUSE)
     Route: 048
     Dates: start: 20191120, end: 20200322

REACTIONS (4)
  - Paraneoplastic arthritis [Recovering/Resolving]
  - Electrocardiogram QT prolonged [Recovered/Resolved]
  - Malignant neoplasm progression [Not Recovered/Not Resolved]
  - Breast cancer metastatic [Not Recovered/Not Resolved]

NARRATIVE: CASE EVENT DATE: 20191011
